FAERS Safety Report 7496279-2 (Version None)
Quarter: 2011Q2

REPORT INFORMATION
  Report Type: 
  Country: None (occurrence: None)
  Receive Date: 20110520
  Receipt Date: 20110520
  Transmission Date: 20111010
  Serious: Yes (Life-Threatening)
  Sender: FDA-Public Use
  Company Number: None

PATIENT
  Age: 27 Year
  Sex: Male
  Weight: 77.1115 kg

DRUGS (2)
  1. TOPAMAX [Suspect]
     Indication: HEADACHE
     Dosage: 2 200
     Dates: start: 20040206, end: 20090801
  2. TOPIRAMATE [Suspect]
     Indication: CONVULSION
     Dosage: 2  200
     Dates: start: 20090801, end: 20110510

REACTIONS (5)
  - CONFUSIONAL STATE [None]
  - SUICIDAL IDEATION [None]
  - APHASIA [None]
  - INSOMNIA [None]
  - UNEVALUABLE EVENT [None]
